FAERS Safety Report 7030777-0 (Version None)
Quarter: 2010Q4

REPORT INFORMATION
  Report Type: 
  Country: None (occurrence: None)
  Receive Date: 20101006
  Receipt Date: 20100921
  Transmission Date: 20110411
  Serious: Yes (Other)
  Sender: FDA-Public Use
  Company Number: PHHO2010BE14285

PATIENT
  Sex: Female
  Weight: 59.8 kg

DRUGS (2)
  1. FTY 720 FTY+ [Suspect]
     Indication: MULTIPLE SCLEROSIS
     Dosage: UNK
     Route: 048
  2. FTY 720 FTY+ [Suspect]
     Dosage: 0.5MG
     Route: 048
     Dates: start: 20100310

REACTIONS (1)
  - SKIN LESION [None]
